FAERS Safety Report 7693976-0 (Version None)
Quarter: 2011Q3

REPORT INFORMATION
  Report Type: 
  Country: None (occurrence: None)
  Receive Date: 20110819
  Receipt Date: 20110812
  Transmission Date: 20111222
  Serious: Yes (Hospitalization, Other)
  Sender: FDA-Public Use
  Company Number: US-BAYER-201041784NA

PATIENT
  Age: 64 Year
  Sex: Male
  Weight: 130 kg

DRUGS (14)
  1. TYLENOL W/ CODEINE NO. 3 [Concomitant]
     Dosage: AS NEEDED
     Dates: start: 20070308
  2. AMIODARONE HCL [Concomitant]
  3. LASIX [Concomitant]
     Route: 048
  4. HEPARIN [Concomitant]
     Dosage: UNK
     Route: 042
     Dates: start: 20070314, end: 20070314
  5. TOBRAMYCIN [Concomitant]
  6. CIPROFLOXACIN [Concomitant]
  7. DIFLUCAN [Concomitant]
  8. VYTORIN [Concomitant]
     Dosage: 10/20MG
     Route: 048
  9. VERSED [Concomitant]
     Dosage: UNK
     Route: 042
     Dates: start: 20070308
  10. FENTANYL [Concomitant]
     Dosage: UNK
     Route: 042
     Dates: start: 20070314, end: 20070314
  11. LIDOCAINE [Concomitant]
  12. TRASYLOL [Suspect]
     Indication: CORONARY ARTERY BYPASS
     Route: 042
     Dates: start: 20060314, end: 20060314
  13. HYTRIN [Concomitant]
  14. VANCOMYCIN [Concomitant]

REACTIONS (10)
  - RENAL FAILURE [None]
  - STRESS [None]
  - ANXIETY [None]
  - UNEVALUABLE EVENT [None]
  - FEAR [None]
  - RENAL INJURY [None]
  - RENAL IMPAIRMENT [None]
  - PAIN [None]
  - EMOTIONAL DISTRESS [None]
  - INJURY [None]
